FAERS Safety Report 8306606-1 (Version None)
Quarter: 2012Q1

REPORT INFORMATION
  Report Type: 
  Country: None (occurrence: None)
  Receive Date: 20120327
  Receipt Date: 20100126
  Transmission Date: 20120608
  Serious: Yes (Hospitalization, Other)
  Sender: FDA-Public Use
  Company Number: PHEH2009US17063

PATIENT
  Age: 72 Year
  Sex: Male
  Weight: 215 kg

DRUGS (1)
  1. GLEEVEC [Suspect]
     Indication: CHRONIC LYMPHOCYTIC LEUKAEMIA
     Dosage: 400 MG, QD, ORAL
     Route: 048
     Dates: start: 20090101, end: 20100114

REACTIONS (4)
  - ANAEMIA [None]
  - THROMBOCYTOPENIA [None]
  - CHRONIC LYMPHOCYTIC LEUKAEMIA RECURRENT [None]
  - SEPSIS [None]
